FAERS Safety Report 16202684 (Version 1)
Quarter: 2019Q2

REPORT INFORMATION
  Report Type: Spontaneous
  Country: DE (occurrence: DE)
  Receive Date: 20190416
  Receipt Date: 20190416
  Transmission Date: 20190711
  Serious: Yes (Congenital Anomaly, Other)
  Sender: FDA-Public Use
  Company Number: DE-ALKEM LABORATORIES LIMITED-DE-ALKEM-2019-03420

PATIENT

DRUGS (1)
  1. QUETIAPINE FUMARATE. [Suspect]
     Active Substance: QUETIAPINE FUMARATE
     Dosage: UNKNOWN
     Route: 064

REACTIONS (3)
  - Junctional ectopic tachycardia [Not Recovered/Not Resolved]
  - Foetal exposure during pregnancy [Unknown]
  - Hydrocele [Recovered/Resolved]

NARRATIVE: CASE EVENT DATE: 20180705
